FAERS Safety Report 5593230-7 (Version None)
Quarter: 2008Q1

REPORT INFORMATION
  Report Type: 
  Country: None (occurrence: None)
  Receive Date: 20080116
  Receipt Date: 20080111
  Transmission Date: 20080703
  Serious: Yes (Hospitalization)
  Sender: FDA-Public Use
  Company Number: MY-AVENTIS-200810417GDDC

PATIENT

DRUGS (2)
  1. LANTUS [Suspect]
     Route: 058
     Dates: start: 20070718
  2. ACTRAPID [Concomitant]
     Route: 058
     Dates: start: 20070401

REACTIONS (3)
  - CELLULITIS [None]
  - ERYTHEMA [None]
  - PAIN [None]
